FAERS Safety Report 6690262-2 (Version None)
Quarter: 2010Q2

REPORT INFORMATION
  Report Type: 
  Country: None (occurrence: None)
  Receive Date: 20100421
  Receipt Date: 20100409
  Transmission Date: 20101027
  Serious: Yes (Hospitalization)
  Sender: FDA-Public Use
  Company Number: JP-ROCHE-697680

PATIENT
  Age: 71 Year
  Sex: Female

DRUGS (3)
  1. AVASTIN [Suspect]
     Indication: LUNG ADENOCARCINOMA
     Route: 042
     Dates: start: 20100129
  2. PACLITAXEL [Suspect]
     Indication: LUNG ADENOCARCINOMA
     Dosage: DRUG: UNKNOWN (PACLITAXEL)
     Route: 041
  3. CARBOPLATIN [Concomitant]
     Dosage: DOSAGE UNCERTAIN
     Route: 041

REACTIONS (1)
  - ARTHRALGIA [None]
